FAERS Safety Report 8539584-0 (Version None)
Quarter: 2012Q3

REPORT INFORMATION
  Report Type: 
  Country: None (occurrence: None)
  Receive Date: 20120726
  Receipt Date: 20120717
  Transmission Date: 20120928
  Serious: Yes (Other)
  Sender: FDA-Public Use
  Company Number: US-ELI_LILLY_AND_COMPANY-US201207005345

PATIENT
  Sex: Male

DRUGS (1)
  1. AXIRON [Suspect]
     Indication: BLOOD TESTOSTERONE DECREASED
     Dosage: 60 MG, UNK
     Dates: start: 20111230, end: 20120102

REACTIONS (7)
  - PRURITUS [None]
  - RASH [None]
  - URTICARIA [None]
  - SKIN EXFOLIATION [None]
  - SKIN BURNING SENSATION [None]
  - ERYTHEMA [None]
  - SKIN WARM [None]
